FAERS Safety Report 21887633 (Version 1)
Quarter: 2023Q1

REPORT INFORMATION
  Report Type: Spontaneous
  Country: SI (occurrence: SI)
  Receive Date: 20230120
  Receipt Date: 20230120
  Transmission Date: 20230418
  Serious: Yes (Other)
  Sender: FDA-Public Use
  Company Number: SI-002147023-NVSC2023SI009550

PATIENT
  Age: 27 Year
  Sex: Female

DRUGS (3)
  1. OMEPRAZOLE [Suspect]
     Active Substance: OMEPRAZOLE
     Indication: Abdominal pain upper
     Dosage: UNK
     Route: 065
     Dates: start: 202203
  2. ACETAMINOPHEN [Suspect]
     Active Substance: ACETAMINOPHEN
     Indication: Abdominal pain upper
     Dosage: UNK
     Route: 065
     Dates: start: 202203
  3. METAMIZOLE [Concomitant]
     Active Substance: METAMIZOLE
     Indication: Abdominal pain upper
     Dosage: UNK
     Route: 065
     Dates: start: 202203

REACTIONS (7)
  - Abortion spontaneous [Unknown]
  - Adrenal calcification [Unknown]
  - Renal cyst [Unknown]
  - Spleen disorder [Unknown]
  - Vomiting [Unknown]
  - Abdominal pain upper [Unknown]
  - Maternal exposure during pregnancy [Unknown]

NARRATIVE: CASE EVENT DATE: 20220501
